FAERS Safety Report 5502527-8 (Version None)
Quarter: 2007Q4

REPORT INFORMATION
  Report Type: 
  Country: None (occurrence: None)
  Receive Date: 20071030
  Receipt Date: 20071025
  Transmission Date: 20080405
  Serious: No
  Sender: FDA-Public Use
  Company Number: US-BOEHRINGER INGELHEIM PHARMACEUTICALS, INC.-2007-BP-23338BP

PATIENT
  Sex: Male

DRUGS (1)
  1. SPIRIVA [Suspect]
     Route: 055

REACTIONS (2)
  - URINARY RETENTION [None]
  - VISION BLURRED [None]
